FAERS Safety Report 25316706 (Version 1)
Quarter: 2025Q2

REPORT INFORMATION
  Report Type: Spontaneous
  Country: US (occurrence: US)
  Receive Date: 20250515
  Receipt Date: 20250515
  Transmission Date: 20250716
  Serious: No
  Sender: DR REDDYS
  Company Number: US-DRL-USA-USA/2025/04/006293

PATIENT
  Sex: Female

DRUGS (1)
  1. FEXOFENADINE HYDROCHLORIDE [Suspect]
     Active Substance: FEXOFENADINE HYDROCHLORIDE
     Indication: Rash

REACTIONS (4)
  - Product prescribing issue [Unknown]
  - Memory impairment [Unknown]
  - Dry skin [Not Recovered/Not Resolved]
  - Drug ineffective for unapproved indication [Unknown]
